FAERS Safety Report 7109249-0 (Version None)
Quarter: 2010Q4

REPORT INFORMATION
  Report Type: 
  Country: None (occurrence: None)
  Receive Date: 20101117
  Receipt Date: 20101021
  Transmission Date: 20110411
  Serious: Yes (Death)
  Sender: FDA-Public Use
  Company Number: GB-AMGEN-GBRCT2010001063

PATIENT

DRUGS (12)
  1. ETANERCEPT [Suspect]
     Indication: RHEUMATOID ARTHRITIS
     Dosage: 25 MG, 2 TIMES/WK
     Dates: start: 20040107
  2. PREDNISOLONE [Concomitant]
     Dosage: UNKNOWN
  3. ACTONEL [Concomitant]
     Dosage: UNKNOWN
  4. AMLODIPINE [Concomitant]
     Dosage: UNKNOWN
  5. ZOTON [Concomitant]
     Dosage: UNKNOWN
  6. CALCICHEW [Concomitant]
     Dosage: UNKNOWN
  7. ACETAMINOPHEN WITH PROPOXYPHENE HCL TAB [Concomitant]
     Dosage: UNKNOWN
  8. FUROSEMIDE [Concomitant]
     Dosage: UNKNOWN
  9. SPIRONOLACTONE [Concomitant]
     Dosage: UNKNOWN
  10. TRAMADOL HCL [Concomitant]
     Dosage: UNKNOWN
  11. HYDROXYCHLOROQUINE [Concomitant]
     Dosage: UNKNOWN
     Dates: start: 20040107
  12. ACETYLSALICYLIC ACID SRT [Concomitant]
     Dosage: UNKNOWN

REACTIONS (2)
  - LOBAR PNEUMONIA [None]
  - PERIPHERAL VASCULAR DISORDER [None]
